FAERS Safety Report 4896341-4 (Version None)
Quarter: 2006Q1

REPORT INFORMATION
  Report Type: 
  Country: None (occurrence: None)
  Receive Date: 20060126
  Receipt Date: 20060110
  Transmission Date: 20060701
  Serious: Yes (Other)
  Sender: FDA-Public Use
  Company Number: 200601IM000081

PATIENT
  Age: 77 Year
  Sex: Male

DRUGS (1)
  1. INTERFERON GAMMA-1B [Suspect]
     Indication: IDIOPATHIC PULMONARY FIBROSIS

REACTIONS (8)
  - ARTHRALGIA [None]
  - CHILLS [None]
  - DIFFUSE ALVEOLAR DAMAGE [None]
  - DRUG TOXICITY [None]
  - DYSPNOEA [None]
  - NAUSEA [None]
  - PNEUMONITIS [None]
  - RESPIRATORY FAILURE [None]
